FAERS Safety Report 15000766 (Version 1)
Quarter: 2018Q2

REPORT INFORMATION
  Report Type: Spontaneous
  Country: FR (occurrence: FR)
  Receive Date: 20180612
  Receipt Date: 20180612
  Transmission Date: 20180711
  Serious: Yes (Death)
  Sender: FDA-Public Use
  Company Number: FR-JNJFOC-20180611683

PATIENT
  Age: 65 Year
  Sex: Male
  Weight: 89.98 kg

DRUGS (1)
  1. XARELTO [Suspect]
     Active Substance: RIVAROXABAN
     Indication: PRODUCT USED FOR UNKNOWN INDICATION
     Route: 048
     Dates: end: 20180519

REACTIONS (2)
  - Brain stem haematoma [Fatal]
  - Coma [Fatal]

NARRATIVE: CASE EVENT DATE: 20180519
